FAERS Safety Report 16466186 (Version 3)
Quarter: 2019Q4

REPORT INFORMATION
  Report Type: Spontaneous
  Country: US (occurrence: US)
  Receive Date: 20190621
  Receipt Date: 20191222
  Transmission Date: 20200122
  Serious: No
  Sender: FDA-Public Use
  Company Number: US-ACORDA-ACO_159328_2019

PATIENT
  Age: 70 Year
  Sex: Male
  Weight: 88.44 kg

DRUGS (4)
  1. RASAGILINE. [Suspect]
     Active Substance: RASAGILINE
     Indication: PARKINSON^S DISEASE
     Dosage: 0.5 MILLIGRAM
     Route: 065
  2. INBRIJA [Suspect]
     Active Substance: LEVODOPA
     Indication: PARKINSON^S DISEASE
     Dosage: 84 MILLIGRAM, AS NEEDED, UP TO 5 TIMES PER DAY
     Dates: start: 20190503
  3. MAGNESIUM [Concomitant]
     Active Substance: MAGNESIUM
     Indication: PRODUCT USED FOR UNKNOWN INDICATION
     Dosage: UNK
     Route: 065
  4. AMANTADINE. [Concomitant]
     Active Substance: AMANTADINE HYDROCHLORIDE
     Indication: PRODUCT USED FOR UNKNOWN INDICATION
     Dosage: UNK
     Route: 065

REACTIONS (13)
  - Retching [Recovered/Resolved]
  - Drug ineffective [Unknown]
  - Device occlusion [Unknown]
  - Cough [Recovered/Resolved]
  - Foreign body in respiratory tract [Unknown]
  - Device issue [Unknown]
  - Contraindicated product administered [Unknown]
  - Parkinson^s disease [Unknown]
  - Wheezing [Unknown]
  - Device defective [Unknown]
  - Therapy cessation [Unknown]
  - Anxiety [Unknown]
  - Incorrect dose administered by device [Unknown]

NARRATIVE: CASE EVENT DATE: 201905
